FAERS Safety Report 7889959-8 (Version None)
Quarter: 2011Q4

REPORT INFORMATION
  Report Type: 
  Country: None (occurrence: None)
  Receive Date: 20111103
  Receipt Date: 20111028
  Transmission Date: 20120403
  Serious: Yes (Hospitalization)
  Sender: FDA-Public Use
  Company Number: SE-AMGEN-SWESP2011055945

PATIENT
  Age: 68 Year
  Sex: Male

DRUGS (3)
  1. IRINOTECAN HCL [Concomitant]
     Indication: COLON CANCER
     Dosage: 180 MG/M2, UNK
  2. ENOXAPARIN SODIUM [Concomitant]
     Indication: PULMONARY EMBOLISM
  3. VECTIBIX [Suspect]
     Indication: COLON CANCER
     Dosage: 6 MG/KG, UNK

REACTIONS (1)
  - CEREBROVASCULAR ACCIDENT [None]
